FAERS Safety Report 5183838-5 (Version None)
Quarter: 2006Q4

REPORT INFORMATION
  Report Type: 
  Country: None (occurrence: None)
  Receive Date: 20061220
  Receipt Date: 20061211
  Transmission Date: 20070319
  Serious: Yes (Hospitalization)
  Sender: FDA-Public Use
  Company Number: FR-GLAXOSMITHKLINE-B0449925A

PATIENT
  Age: 80 Year
  Sex: Female
  Weight: 80 kg

DRUGS (4)
  1. DEROXAT [Suspect]
     Dosage: 10MG PER DAY
     Route: 048
     Dates: start: 20061025, end: 20061109
  2. ALDALIX [Concomitant]
  3. ISORYTHM [Concomitant]
  4. ENDOTELON [Concomitant]

REACTIONS (10)
  - CONFUSIONAL STATE [None]
  - DEHYDRATION [None]
  - HYPERHIDROSIS [None]
  - HYPERNATRAEMIA [None]
  - HYPERTENSION [None]
  - HYPERTHERMIA [None]
  - SEROTONIN SYNDROME [None]
  - TACHYCARDIA [None]
  - TREMOR [None]
  - URINARY TRACT INFECTION [None]
